FAERS Safety Report 4318268-9 (Version None)
Quarter: 2004Q1

REPORT INFORMATION
  Report Type: 
  Country: None (occurrence: None)
  Receive Date: 20040315
  Receipt Date: 20040128
  Transmission Date: 20041129
  Serious: No
  Sender: FDA-Public Use
  Company Number: 2004196538US

PATIENT

DRUGS (5)
  1. BEXTRA [Suspect]
  2. MOBIC [Suspect]
  3. OPTOPEC [Suspect]
  4. CELUDATE [Suspect]
  5. EXTRA STRENGTH TYLENOL [Concomitant]

REACTIONS (2)
  - BLOOD PRESSURE INCREASED [None]
  - GASTRIC DISORDER [None]
